FAERS Safety Report 4621364-X (Version None)
Quarter: 2005Q1

REPORT INFORMATION
  Report Type: 
  Country: None (occurrence: None)
  Receive Date: 20050328
  Receipt Date: 20050323
  Transmission Date: 20050727
  Serious: Yes (Other)
  Sender: FDA-Public Use
  Company Number: 004450

PATIENT
  Sex: Female

DRUGS (4)
  1. MEDROXYPROGESTERONE ACETATE [Suspect]
     Dates: start: 19920101, end: 20000101
  2. MEDROXYPROGESTERONE ACETATE [Suspect]
     Dates: start: 19920101, end: 20000101
  3. PREMARIN [Suspect]
     Dates: start: 19920101, end: 20000101
  4. PROVERA [Suspect]
     Dates: start: 19920101, end: 20000101

REACTIONS (1)
  - BREAST CANCER FEMALE [None]
